FAERS Safety Report 20743731 (Version 1)
Quarter: 2022Q2

REPORT INFORMATION
  Report Type: Other
  Country: US (occurrence: None)
  Receive Date: 20220425
  Receipt Date: 20220425
  Transmission Date: 20220721
  Serious: Yes (Other)
  Sender: FDA-Public Use
  Company Number: US-ROCHE-3082555

PATIENT
  Sex: Male

DRUGS (1)
  1. ESBRIET [Suspect]
     Active Substance: PIRFENIDONE
     Indication: Interstitial lung disease
     Dosage: TAKE 3 CAPSULE(S) (801 MG) BY MOUTH 3 TIMES A DAY TO BE TAKEN AFTER INITIAL DOSE TITRATION
     Route: 048

REACTIONS (2)
  - Neoplasm malignant [Unknown]
  - Weight decreased [Unknown]
